FAERS Safety Report 23427053 (Version 5)
Quarter: 2024Q1

REPORT INFORMATION
  Report Type: Spontaneous
  Country: US (occurrence: US)
  Receive Date: 20240122
  Receipt Date: 20240328
  Transmission Date: 20240410
  Serious: No
  Sender: FDA-Public Use
  Company Number: US-PFIZER INC-202300457209

PATIENT
  Age: 12 Year
  Sex: Female

DRUGS (2)
  1. GENOTROPIN [Suspect]
     Active Substance: SOMATROPIN
     Indication: Growth disorder
     Dosage: 1.2 MG, DAILY (START SINCE FEB2022 OR MAR2022)
     Dates: start: 2022
  2. GENOTROPIN [Suspect]
     Active Substance: SOMATROPIN
     Indication: Body height abnormal

REACTIONS (4)
  - Drug dose omission by device [Unknown]
  - Poor quality device used [Unknown]
  - Device leakage [Unknown]
  - Device breakage [Unknown]

NARRATIVE: CASE EVENT DATE: 20230101
